FAERS Safety Report 15990009 (Version 2)
Quarter: 2020Q2

REPORT INFORMATION
  Report Type: Spontaneous
  Country: BR (occurrence: BR)
  Receive Date: 20190221
  Receipt Date: 20200616
  Transmission Date: 20200713
  Serious: Yes (Hospitalization)
  Sender: FDA-Public Use
  Company Number: BR-FERRINGPH-2019FE00679

PATIENT
  Age: 31 Year
  Sex: Female

DRUGS (13)
  1. DDAVP [Suspect]
     Active Substance: DESMOPRESSIN ACETATE
     Dosage: UNK
     Route: 045
     Dates: start: 201902
  2. PURAN [Concomitant]
     Active Substance: LEVOTHYROXINE SODIUM
     Indication: HYPOTHYROIDISM
     Dosage: 88 UG, DAILY
     Route: 048
     Dates: start: 201002
  3. DDAVP [Suspect]
     Active Substance: DESMOPRESSIN ACETATE
     Indication: DIABETES INSIPIDUS
     Dosage: UNK
     Route: 045
     Dates: start: 20200515
  4. DDAVP [Suspect]
     Active Substance: DESMOPRESSIN ACETATE
     Dosage: 0.1 ML, DAILY
     Route: 045
     Dates: start: 201811
  5. DDAVP [Suspect]
     Active Substance: DESMOPRESSIN ACETATE
     Dosage: 0.1 ML, DAILY
     Route: 045
  6. PREDNISONE. [Concomitant]
     Active Substance: PREDNISONE
     Indication: HORMONE REPLACEMENT THERAPY
     Dosage: 10 MG, DAILY
     Route: 048
     Dates: start: 201002
  7. CALCIUM CARBONATE. [Concomitant]
     Active Substance: CALCIUM CARBONATE
     Indication: OSTEOPOROSIS
     Dosage: 15 MG, DAILY
     Route: 048
     Dates: start: 2010
  8. DDAVP [Suspect]
     Active Substance: DESMOPRESSIN ACETATE
     Dosage: 0.05 ML, 2 TIMES DAILY
     Route: 045
     Dates: start: 2010
  9. DDAVP [Suspect]
     Active Substance: DESMOPRESSIN ACETATE
     Dosage: 0.1 ML, DAILY
     Route: 045
  10. ALENDRONATE SODIUM. [Concomitant]
     Active Substance: ALENDRONATE SODIUM
     Indication: OSTEOPOROSIS
     Dosage: 70 MG, DAILY
     Route: 048
     Dates: start: 2010
  11. DDAVP [Suspect]
     Active Substance: DESMOPRESSIN ACETATE
     Indication: DIABETES INSIPIDUS
     Dosage: 0.1 ML, DAILY
     Route: 045
     Dates: start: 201902, end: 201902
  12. DDAVP [Suspect]
     Active Substance: DESMOPRESSIN ACETATE
     Dosage: 0.2 ML, DAILY
     Route: 045
     Dates: start: 2019, end: 2019
  13. CHOLECALCIFEROL [Concomitant]
     Active Substance: CHOLECALCIFEROL
     Indication: OSTEOPOROSIS
     Dosage: 21 DF, DAILY
     Route: 048
     Dates: start: 2010

REACTIONS (5)
  - Product quality issue [Not Recovered/Not Resolved]
  - Product dispensing error [Recovered/Resolved]
  - Wrong dose [Not Recovered/Not Resolved]
  - Blood sodium decreased [Recovered/Resolved]
  - Hyponatraemia [Recovered/Resolved]

NARRATIVE: CASE EVENT DATE: 2010
